FAERS Safety Report 11031039 (Version 1)
Quarter: 2015Q2

REPORT INFORMATION
  Report Type: Spontaneous
  Country: US (occurrence: US)
  Receive Date: 20150415
  Receipt Date: 20150415
  Transmission Date: 20150821
  Serious: No
  Sender: FDA-Public Use
  Company Number: US-ASTRAZENECA-2015SE18649

PATIENT
  Sex: Female

DRUGS (5)
  1. PREVACID [Suspect]
     Active Substance: LANSOPRAZOLE
     Indication: GASTRIC DISORDER
     Route: 048
  2. ZANTAC [Suspect]
     Active Substance: RANITIDINE HYDROCHLORIDE
     Route: 065
  3. PREVACID [Suspect]
     Active Substance: LANSOPRAZOLE
     Indication: GASTRIC DISORDER
     Route: 048
  4. PROTONIX [Suspect]
     Active Substance: PANTOPRAZOLE SODIUM
     Route: 065
  5. PRILOSEC OTC [Suspect]
     Active Substance: OMEPRAZOLE MAGNESIUM
     Route: 048

REACTIONS (5)
  - Iron deficiency [Unknown]
  - Gastric pH decreased [Unknown]
  - Drug dependence [Unknown]
  - Incorrect drug administration duration [Unknown]
  - Rebound effect [Unknown]
